FAERS Safety Report 7235988-7 (Version None)
Quarter: 2011Q1

REPORT INFORMATION
  Report Type: 
  Country: None (occurrence: None)
  Receive Date: 20110120
  Receipt Date: 20110113
  Transmission Date: 20110831
  Serious: Yes (Other)
  Sender: FDA-Public Use
  Company Number: B0694299A

PATIENT
  Sex: Male

DRUGS (2)
  1. AVODART [Suspect]
     Indication: BENIGN PROSTATIC HYPERPLASIA
     Route: 065
     Dates: start: 20100701
  2. HARNAL-D [Suspect]
     Indication: BENIGN PROSTATIC HYPERPLASIA
     Route: 065
     Dates: start: 20100701

REACTIONS (4)
  - DECREASED APPETITE [None]
  - TACHYCARDIA [None]
  - HEPATIC STEATOSIS [None]
  - DRUG INEFFECTIVE [None]
